FAERS Safety Report 7270711-1 (Version None)
Quarter: 2011Q1

REPORT INFORMATION
  Report Type: 
  Country: None (occurrence: None)
  Receive Date: 20110202
  Receipt Date: 20110125
  Transmission Date: 20110831
  Serious: Yes (Hospitalization)
  Sender: FDA-Public Use
  Company Number: B0696884A

PATIENT
  Age: 55 Year
  Sex: Female

DRUGS (2)
  1. REQUIP [Suspect]
     Indication: PARKINSONISM
     Dosage: 4MG PER DAY
     Route: 065
  2. UNKNOWN DRUG [Concomitant]

REACTIONS (1)
  - HYPERTENSIVE CRISIS [None]
